FAERS Safety Report 8611062 (Version 2)
Quarter: 2013Q2

REPORT INFORMATION
  Report Type: Spontaneous
  Country: US (occurrence: US)
  Receive Date: 20120612
  Receipt Date: 20130430
  Transmission Date: 20140414
  Serious: Yes (Hospitalization, Other)
  Sender: FDA-Public Use
  Company Number: US-ROCHE-784269

PATIENT
  Age: 24 Year
  Sex: Male
  Weight: 70.37 kg

DRUGS (5)
  1. ACCUTANE [Suspect]
     Indication: ACNE
     Route: 065
     Dates: start: 200204, end: 200212
  2. ACCUTANE [Suspect]
     Route: 065
     Dates: start: 20020703, end: 20030709
  3. ACCUTANE [Suspect]
     Route: 065
     Dates: start: 200703, end: 200704
  4. PREDNISONE [Concomitant]
  5. SOTRET [Concomitant]

REACTIONS (5)
  - Crohn^s disease [Unknown]
  - Small intestinal obstruction [Unknown]
  - Inflammatory bowel disease [Unknown]
  - Stress [Unknown]
  - Irritable bowel syndrome [Unknown]
